FAERS Safety Report 6855509-8 (Version None)
Quarter: 2010Q3

REPORT INFORMATION
  Report Type: 
  Country: None (occurrence: None)
  Receive Date: 20100719
  Receipt Date: 20100625
  Transmission Date: 20110219
  Serious: No
  Sender: FDA-Public Use
  Company Number: US-TEVA-240610USA

PATIENT
  Sex: Female

DRUGS (10)
  1. AZILECT [Suspect]
  2. PAROXETINE HCL [Suspect]
     Indication: DEPRESSION
     Route: 048
  3. ATENOLOL [Concomitant]
  4. CLOPIDOGREL [Concomitant]
  5. QUETIAPINE [Concomitant]
  6. ROSUVASTATIN [Concomitant]
  7. GALANTAMINE [Concomitant]
  8. ACETYLSALICYLIC ACID [Concomitant]
  9. LEVOTHYROXINE SODIUM [Concomitant]
  10. OMEPRAZOLE [Concomitant]

REACTIONS (8)
  - AMNESIA [None]
  - CONFUSIONAL STATE [None]
  - DRUG INTERACTION [None]
  - IRRITABILITY [None]
  - MEMORY IMPAIRMENT [None]
  - MOOD ALTERED [None]
  - RESTLESSNESS [None]
  - THINKING ABNORMAL [None]
